FAERS Safety Report 23048404 (Version 2)
Quarter: 2023Q4

REPORT INFORMATION
  Report Type: Spontaneous
  Country: US (occurrence: US)
  Receive Date: 20231010
  Receipt Date: 20231125
  Transmission Date: 20240110
  Serious: No
  Sender: FDA-Public Use
  Company Number: US-002147023-NVSC2023US212861

PATIENT
  Sex: Male

DRUGS (1)
  1. PLUVICTO [Suspect]
     Active Substance: LUTETIUM LU-177 VIPIVOTIDE TETRAXETAN
     Indication: Prostate cancer
     Dosage: UNK
     Route: 042
     Dates: start: 20230630

REACTIONS (4)
  - Onychomadesis [Recovering/Resolving]
  - Onychoclasis [Recovering/Resolving]
  - Skin exfoliation [Unknown]
  - Hypoaesthesia [Unknown]
